FAERS Safety Report 26145294 (Version 1)
Quarter: 2025Q4

REPORT INFORMATION
  Report Type: Spontaneous
  Country: US (occurrence: None)
  Receive Date: 20251211
  Receipt Date: 20251211
  Transmission Date: 20260118
  Serious: Yes (Hospitalization, Other)
  Sender: UCB
  Company Number: US-UCBSA-2025078096

PATIENT
  Age: 26 Year
  Weight: 79.819 kg

DRUGS (2)
  1. KEPPRA [Suspect]
     Active Substance: LEVETIRACETAM
     Indication: Seizure
     Dosage: UNK
  2. KEPPRA [Suspect]
     Active Substance: LEVETIRACETAM
     Indication: Seizure
     Dosage: TWO ORAL 500 MG PILLS (ONE THAT NIGHT, ONE THE FOLLOWING MORNING

REACTIONS (4)
  - Acute kidney injury [Recovered/Resolved]
  - Seizure [Unknown]
  - Shoulder fracture [Unknown]
  - Joint dislocation [Unknown]
